FAERS Safety Report 24682420 (Version 1)
Quarter: 2024Q4

REPORT INFORMATION
  Report Type: Other
  Country: US (occurrence: US)
  Receive Date: 20241130
  Receipt Date: 20241130
  Transmission Date: 20250115
  Serious: Yes (Other)
  Sender: OMNIVIUM PHARMACEUTICALS LLC
  Company Number: US-Omnivium Pharmaceuticals LLC-2166222

PATIENT
  Age: 64 Year
  Sex: Male

DRUGS (2)
  1. ISONIAZID [Suspect]
     Active Substance: ISONIAZID
     Indication: Meningitis tuberculous
  2. RIFAMPIN [Suspect]
     Active Substance: RIFAMPIN

REACTIONS (2)
  - Dermatitis exfoliative generalised [Unknown]
  - Eosinophilia [Recovered/Resolved]
